FAERS Safety Report 4988344-6 (Version None)
Quarter: 2006Q2

REPORT INFORMATION
  Report Type: 
  Country: None (occurrence: None)
  Receive Date: 20060502
  Receipt Date: 20060421
  Transmission Date: 20061013
  Serious: Yes (Other)
  Sender: FDA-Public Use
  Company Number: US-JNJFOC-20060302239

PATIENT
  Sex: Male
  Weight: 34.93 kg

DRUGS (7)
  1. REMICADE [Suspect]
     Route: 042
  2. REMICADE [Suspect]
     Indication: CROHN'S DISEASE
     Dosage: WAS GIVEN EVERY 10-12 WEEKS AND NOW MONTHLY DOSING STARTING 14-FEB-2006.
     Route: 042
  3. ASACOL [Concomitant]
     Dosage: 4 PILLS
  4. ASACOL [Concomitant]
     Indication: CROHN'S DISEASE
     Dosage: 3 PILLS
  5. 6MP [Concomitant]
     Indication: CROHN'S DISEASE
     Dosage: 3/4 PILL DAILY
  6. PREDNISONE TAB [Concomitant]
     Indication: CROHN'S DISEASE
  7. PREVACID [Concomitant]
     Indication: GASTROOESOPHAGEAL REFLUX DISEASE

REACTIONS (40)
  - ABDOMINAL PAIN [None]
  - BACK PAIN [None]
  - BALANCE DISORDER [None]
  - BREATH ODOUR [None]
  - CHEST PAIN [None]
  - CHILLS [None]
  - CONFUSIONAL STATE [None]
  - CONSTIPATION [None]
  - COUGH [None]
  - CROHN'S DISEASE [None]
  - DARK CIRCLES UNDER EYES [None]
  - DECREASED APPETITE [None]
  - ERYTHEMA [None]
  - FALL [None]
  - FATIGUE [None]
  - GLOSSODYNIA [None]
  - HAEMOGLOBIN DECREASED [None]
  - HEADACHE [None]
  - HEPATIC ENZYME INCREASED [None]
  - HYPOAESTHESIA [None]
  - INCREASED TENDENCY TO BRUISE [None]
  - INFLUENZA [None]
  - INFLUENZA LIKE ILLNESS [None]
  - INFUSION RELATED REACTION [None]
  - INSOMNIA [None]
  - MEMORY IMPAIRMENT [None]
  - MUSCLE TWITCHING [None]
  - MYALGIA [None]
  - NAUSEA [None]
  - NERVOUSNESS [None]
  - OBSESSIVE-COMPULSIVE DISORDER [None]
  - PAIN IN EXTREMITY [None]
  - PARAESTHESIA [None]
  - RENAL PAIN [None]
  - RESPIRATORY DISORDER [None]
  - SENSATION OF FOREIGN BODY [None]
  - URINE ABNORMALITY [None]
  - URTICARIA [None]
  - VISION BLURRED [None]
  - VOMITING [None]
